FAERS Safety Report 14078860 (Version 2)
Quarter: 2017Q4

REPORT INFORMATION
  Report Type: Spontaneous
  Country: RU (occurrence: RU)
  Receive Date: 20171012
  Receipt Date: 20171019
  Transmission Date: 20180321
  Serious: Yes (Hospitalization)
  Sender: FDA-Public Use
  Company Number: RU-ASTRAZENECA-2017SF03374

PATIENT
  Age: 47 Year
  Sex: Male
  Weight: 72 kg

DRUGS (8)
  1. ENAP [Concomitant]
     Active Substance: ENALAPRIL
     Dates: end: 201706
  2. METOPROLOL TARTRATE. [Concomitant]
     Active Substance: METOPROLOL TARTRATE
  3. BRILINTA [Suspect]
     Active Substance: TICAGRELOR
     Indication: ANGINA UNSTABLE
     Route: 048
     Dates: start: 201707
  4. THROMBO ASS [Concomitant]
     Active Substance: ASPIRIN
     Dates: start: 201706
  5. NORVASK [Concomitant]
     Active Substance: AMLODIPINE BESYLATE
  6. LORISTA [Concomitant]
     Active Substance: LOSARTAN POTASSIUM
     Dates: end: 201706
  7. APROVEL [Concomitant]
     Active Substance: IRBESARTAN
  8. AMLODIPINE [Concomitant]
     Active Substance: AMLODIPINE BESYLATE

REACTIONS (3)
  - Vascular stent restenosis [Recovered/Resolved]
  - Aortic arteriosclerosis [Unknown]
  - Acute coronary syndrome [Unknown]

NARRATIVE: CASE EVENT DATE: 201709
